FAERS Safety Report 5952009-4 (Version None)
Quarter: 2008Q4

REPORT INFORMATION
  Report Type: 
  Country: None (occurrence: None)
  Receive Date: 20081113
  Receipt Date: 20071114
  Transmission Date: 20090506
  Serious: No
  Sender: FDA-Public Use
  Company Number: A0694494A

PATIENT
  Age: 72 Year
  Sex: Female

DRUGS (10)
  1. COREG [Suspect]
     Dosage: 12.5MG TWICE PER DAY
     Route: 048
  2. SYNTHROID [Concomitant]
  3. CALCITRIOL [Concomitant]
  4. GEMFIBROZIL [Concomitant]
  5. CARVEDILOL [Concomitant]
  6. PLAVIX [Concomitant]
  7. DIOVAN [Concomitant]
  8. FAMOTIDINE [Concomitant]
  9. TEMAZEPAM [Concomitant]
  10. SODIUM BICARB [Concomitant]

REACTIONS (2)
  - ALOPECIA [None]
  - FATIGUE [None]
